FAERS Safety Report 16673330 (Version 3)
Quarter: 2020Q3

REPORT INFORMATION
  Report Type: Spontaneous
  Country: DE (occurrence: DE)
  Receive Date: 20190806
  Receipt Date: 20200929
  Transmission Date: 20201102
  Serious: Yes (Death, Life-Threatening, Hospitalization, Other)
  Sender: FDA-Public Use
  Company Number: DE-AMGEN-DEUSP2019123677

PATIENT

DRUGS (6)
  1. ONCOVIN [Concomitant]
     Active Substance: VINCRISTINE SULFATE
     Indication: DIFFUSE LARGE B-CELL LYMPHOMA
     Dosage: 1.4 MILLIGRAM/SQ. METER, Q3WK (CAPPED AT 2 OR 1 MG AND ADMINISTERED ON DAY 2 OF CYCLE)
     Route: 042
  2. RITUXIMAB. [Concomitant]
     Active Substance: RITUXIMAB
     Indication: DIFFUSE LARGE B-CELL LYMPHOMA
     Dosage: 375 MILLIGRAM/SQ. METER, Q3WK (ON DAY 1 OR DAY 2 OF CYCLE)
  3. NEULASTA [Suspect]
     Active Substance: PEGFILGRASTIM
     Indication: PROPHYLAXIS
     Dosage: 6 MILLIGRAM, CYCLICAL (ON DAY 3 OF EACH R?CHOP CYCLE)
     Route: 058
  4. PREDNISONE. [Concomitant]
     Active Substance: PREDNISONE
     Indication: DIFFUSE LARGE B-CELL LYMPHOMA
     Dosage: 100 MILLIGRAM, Q3WK (ON DAYS 2 TO 6 OF CYCLE)
     Route: 048
  5. CYCLOPHOSPHAMIDE. [Concomitant]
     Active Substance: CYCLOPHOSPHAMIDE
     Indication: DIFFUSE LARGE B-CELL LYMPHOMA
     Dosage: 750 MILLIGRAM/SQ. METER, Q3WK (ON DAY 2 OF CYCLE)
  6. HYDROXYDAUNORUBICIN [Concomitant]
     Active Substance: DOXORUBICIN
     Indication: DIFFUSE LARGE B-CELL LYMPHOMA
     Dosage: 50 MILLIGRAM/SQ. METER, Q3WK (ON DAY 2 OF CYCLE)

REACTIONS (80)
  - Sepsis [Unknown]
  - Polyneuropathy [Unknown]
  - Cerebrovascular accident [Unknown]
  - Dysgeusia [Unknown]
  - Mucosal inflammation [Unknown]
  - Flank pain [Unknown]
  - Oral candidiasis [Unknown]
  - Arthralgia [Unknown]
  - Rash [Unknown]
  - Oedema peripheral [Unknown]
  - Gait disturbance [Unknown]
  - Acute myocardial infarction [Unknown]
  - Atrial fibrillation [Unknown]
  - Abscess neck [Unknown]
  - Upper respiratory tract infection [Unknown]
  - Urinary tract infection [Unknown]
  - Weight decreased [Unknown]
  - Abdominal pain [Unknown]
  - Diarrhoea [Unknown]
  - Decreased appetite [Unknown]
  - Cystitis [Unknown]
  - Back pain [Unknown]
  - Thrombocytopenia [Unknown]
  - Dyspnoea [Unknown]
  - Coma [Fatal]
  - Colitis ischaemic [Unknown]
  - Hyponatraemia [Unknown]
  - Pneumonia [Unknown]
  - Paraesthesia [Unknown]
  - Influenza [Unknown]
  - Neutropenia [Unknown]
  - Pyrexia [Unknown]
  - Leukopenia [Unknown]
  - Vomiting [Unknown]
  - Burkitt^s lymphoma [Unknown]
  - Syncope [Unknown]
  - Ileus [Unknown]
  - Metabolic acidosis [Unknown]
  - Cough [Unknown]
  - Dizziness [Unknown]
  - Dry mouth [Unknown]
  - Conjunctivitis [Unknown]
  - Herpes zoster [Unknown]
  - Fatigue [Unknown]
  - Bronchitis [Unknown]
  - General physical health deterioration [Unknown]
  - Confusional state [Unknown]
  - Femur fracture [Unknown]
  - Pneumonitis [Unknown]
  - Febrile neutropenia [Unknown]
  - Epilepsy [Unknown]
  - Orthostatic intolerance [Unknown]
  - Osteoporotic fracture [Unknown]
  - Insomnia [Unknown]
  - Restlessness [Unknown]
  - Constipation [Unknown]
  - Fungal infection [Unknown]
  - Neuropathy peripheral [Unknown]
  - Unevaluable event [Unknown]
  - Nausea [Unknown]
  - Metastases to central nervous system [Unknown]
  - Tooth abscess [Unknown]
  - Anaemia [Unknown]
  - Oropharyngeal pain [Unknown]
  - Abdominal pain upper [Unknown]
  - Headache [Unknown]
  - Asthenia [Unknown]
  - Hypokalaemia [Unknown]
  - Performance status decreased [Unknown]
  - Suture rupture [Unknown]
  - Bursitis [Unknown]
  - Bone pain [Unknown]
  - Stomatitis [Unknown]
  - Hypotension [Unknown]
  - Leukocytosis [Unknown]
  - Lymphocele [Unknown]
  - Dehydration [Unknown]
  - C-reactive protein increased [Unknown]
  - Alopecia [Unknown]
  - Viral upper respiratory tract infection [Unknown]
